FAERS Safety Report 24202506 (Version 1)
Quarter: 2024Q3

REPORT INFORMATION
  Report Type: Spontaneous
  Country: US (occurrence: US)
  Receive Date: 20240813
  Receipt Date: 20240813
  Transmission Date: 20241017
  Serious: No
  Sender: GLENMARK
  Company Number: US-GLENMARK PHARMACEUTICALS-2024GMK089639

PATIENT

DRUGS (1)
  1. VERAPAMIL [Suspect]
     Active Substance: VERAPAMIL HYDROCHLORIDE
     Indication: Atrial fibrillation
     Dosage: UNK (SHE USUALLY TAKES THE MEDICATION AND BREAKS IT IN HALF)
     Route: 065

REACTIONS (2)
  - Drug effective for unapproved indication [Unknown]
  - Contraindicated product administered [Unknown]
